FAERS Safety Report 14732274 (Version 1)
Quarter: 2018Q2

REPORT INFORMATION
  Report Type: Report from Study
  Country: US (occurrence: US)
  Receive Date: 20180409
  Receipt Date: 20180409
  Transmission Date: 20180711
  Serious: Yes (Hospitalization)
  Sender: FDA-Public Use
  Company Number: US-ROCHE-2099496

PATIENT
  Age: 54 Year
  Sex: Male
  Weight: 102.6 kg

DRUGS (8)
  1. IRINOTECAN [Suspect]
     Active Substance: IRINOTECAN
     Indication: MALIGNANT NEOPLASM OF UNKNOWN PRIMARY SITE
  2. IRINOTECAN [Suspect]
     Active Substance: IRINOTECAN
     Indication: METASTASES TO PERITONEUM
  3. ZELBORAF [Suspect]
     Active Substance: VEMURAFENIB
     Indication: RETROPERITONEAL CANCER
  4. ZELBORAF [Suspect]
     Active Substance: VEMURAFENIB
     Indication: METASTASES TO PERITONEUM
  5. ZELBORAF [Suspect]
     Active Substance: VEMURAFENIB
     Indication: COLON CANCER
     Dosage: FOUR PILLS IN THE MORNING/ FOUR 12 HOURS LATE.
     Route: 048
     Dates: start: 201802
  6. IRINOTECAN [Suspect]
     Active Substance: IRINOTECAN
     Indication: RETROPERITONEAL CANCER
  7. ZELBORAF [Suspect]
     Active Substance: VEMURAFENIB
     Indication: MALIGNANT NEOPLASM OF UNKNOWN PRIMARY SITE
  8. IRINOTECAN [Suspect]
     Active Substance: IRINOTECAN
     Indication: COLON CANCER
     Route: 042
     Dates: start: 201802

REACTIONS (4)
  - Diarrhoea [Recovered/Resolved]
  - Inflammation [Unknown]
  - White blood cell count decreased [Recovered/Resolved]
  - Off label use [Unknown]

NARRATIVE: CASE EVENT DATE: 201803
